FAERS Safety Report 8373705-8 (Version None)
Quarter: 2012Q2

REPORT INFORMATION
  Report Type: 
  Country: None (occurrence: None)
  Receive Date: 20120521
  Receipt Date: 20120515
  Transmission Date: 20120825
  Serious: Yes (Life-Threatening, Hospitalization)
  Sender: FDA-Public Use
  Company Number: JP-ROCHE-1051710

PATIENT
  Sex: Female
  Weight: 54 kg

DRUGS (21)
  1. INFLIXIMAB [Suspect]
     Indication: PRODUCT USED FOR UNKNOWN INDICATION
     Route: 065
     Dates: start: 20091202
  2. INFLIXIMAB [Suspect]
     Route: 065
     Dates: start: 20111208, end: 20111208
  3. KETOPROFEN [Concomitant]
     Dates: start: 20061225
  4. ATORVASTATIN CALCIUM [Concomitant]
     Dates: start: 20100331
  5. CELECOXIB [Concomitant]
     Dates: start: 20100727
  6. LANSOPRAZOLE [Concomitant]
     Dates: start: 20100331
  7. PREDNISOLONE [Suspect]
     Indication: PRODUCT USED FOR UNKNOWN INDICATION
     Route: 065
     Dates: start: 20111208
  8. ALFACALCIDOL [Concomitant]
     Dates: start: 20100331
  9. CANDESARTAN CILEXETIL [Concomitant]
     Dates: start: 20100216
  10. METHOTREXATE [Suspect]
     Indication: PRODUCT USED FOR UNKNOWN INDICATION
     Dates: start: 20111027
  11. METHOTREXATE [Suspect]
     Dates: end: 20120315
  12. FOLIC ACID [Concomitant]
     Dates: start: 20100331
  13. ACTEMRA [Suspect]
     Indication: PRODUCT USED FOR UNKNOWN INDICATION
     Route: 065
     Dates: start: 20120216
  14. OCRELIZUMAB [Suspect]
     Indication: RHEUMATOID ARTHRITIS
     Dosage: FIRST DOSE OF FIRST CYCLE
     Route: 042
     Dates: start: 20081202
  15. ACTEMRA [Suspect]
     Route: 065
     Dates: start: 20120315
  16. LEUCOVORIN CALCIUM [Concomitant]
  17. OCRELIZUMAB [Suspect]
     Dosage: FIRST DOSE OF SECOND CYCLE
     Route: 042
     Dates: start: 20090515
  18. ALENDRONATE SODIUM [Concomitant]
     Dates: start: 20100331
  19. OCRELIZUMAB [Suspect]
     Dosage: SECOND DOSE OF FIRST CYCLE
     Route: 042
     Dates: start: 20081216
  20. CLARITHROMYCIN [Concomitant]
     Dates: start: 20110216
  21. OCRELIZUMAB [Suspect]
     Dosage: SECOND DOSE OF SECOND CYCLE
     Route: 042
     Dates: start: 20090529

REACTIONS (3)
  - PERITONITIS [None]
  - DIVERTICULAR PERFORATION [None]
  - SEPTIC SHOCK [None]
